FAERS Safety Report 6138946-9 (Version None)
Quarter: 2009Q1

REPORT INFORMATION
  Report Type: 
  Country: None (occurrence: None)
  Receive Date: 20090324
  Receipt Date: 20090323
  Transmission Date: 20090719
  Serious: Yes (Other)
  Sender: FDA-Public Use
  Company Number: SPV1-2008-02758

PATIENT
  Age: 64 Year
  Sex: Female
  Weight: 74.8 kg

DRUGS (10)
  1. FOSRENOL [Suspect]
     Indication: RENAL FAILURE CHRONIC
     Dosage: 1000 MG, ORAL
     Route: 048
     Dates: start: 20080616
  2. ALLOPURINOL [Concomitant]
  3. COLCHICINE (COLCHICINE) [Concomitant]
  4. LISINOPRIL [Concomitant]
  5. RETAPAMULIN (RETAPAMULIN) [Concomitant]
  6. EPOGEN [Concomitant]
  7. FERROUS SULFATE TAB [Concomitant]
  8. LORATAB (LORATADINE) [Concomitant]
  9. DOCUSATE (DOCUSATE) [Concomitant]
  10. VITAMINS NOS (VITAMINS NOS) [Concomitant]

REACTIONS (9)
  - ASTHENIA [None]
  - BLOOD CHOLESTEROL INCREASED [None]
  - DEHYDRATION [None]
  - DISEASE RECURRENCE [None]
  - FEELING ABNORMAL [None]
  - HYPOTENSION [None]
  - MULTIPLE MYELOMA [None]
  - PERITONEAL DIALYSIS [None]
  - VOMITING [None]
